FAERS Safety Report 21637751 (Version 1)
Quarter: 2022Q4

REPORT INFORMATION
  Report Type: Report from Study
  Country: MX (occurrence: MX)
  Receive Date: 20221124
  Receipt Date: 20221124
  Transmission Date: 20230113
  Serious: Yes (Death, Disabling, Other)
  Sender: FDA-Public Use
  Company Number: MX-UCBSA-2022067361

PATIENT
  Sex: Female
  Weight: 50 kg

DRUGS (1)
  1. LACOSAMIDE [Suspect]
     Active Substance: LACOSAMIDE
     Indication: Seizure
     Dosage: UNK
     Route: 048
     Dates: start: 2016, end: 20201104

REACTIONS (5)
  - Death [Fatal]
  - Cerebrovascular accident [Recovered/Resolved]
  - Bedridden [Recovered/Resolved]
  - Weight decreased [Unknown]
  - Body height decreased [Unknown]

NARRATIVE: CASE EVENT DATE: 20160101
